FAERS Safety Report 7796928-5 (Version None)
Quarter: 2011Q4

REPORT INFORMATION
  Report Type: 
  Country: None (occurrence: None)
  Receive Date: 20111005
  Receipt Date: 20110929
  Transmission Date: 20120403
  Serious: Yes (Death, Other)
  Sender: FDA-Public Use
  Company Number: JP-BAYER-201014980BYL

PATIENT
  Age: 53 Year
  Sex: Male
  Weight: 79 kg

DRUGS (7)
  1. NEXAVAR [Suspect]
     Indication: HEPATIC NEOPLASM MALIGNANT
     Dosage: 200MG, BID
     Route: 048
     Dates: start: 20100907, end: 20100918
  2. CELECOXIB [Concomitant]
     Dosage: 200 MG, PRN
     Route: 048
     Dates: start: 20100906, end: 20100907
  3. LANSOPRAZOLE [Concomitant]
     Dosage: 15 MG, QD
     Route: 048
     Dates: start: 20100906
  4. MAGNESIUM OXIDE [Concomitant]
     Dosage: 1.5 G, TID
     Route: 048
     Dates: start: 20100906
  5. AMINOLEBAN EN [Concomitant]
     Dosage: 150 G, TID
     Route: 048
     Dates: start: 20100906
  6. MUCOSTA [Concomitant]
     Dosage: 100 MG, TID
     Route: 048
     Dates: start: 20100906
  7. MIYA BM [Concomitant]
     Dosage: 20 MG, TID
     Route: 048
     Dates: start: 20100906

REACTIONS (4)
  - MALAISE [None]
  - HEPATIC NEOPLASM MALIGNANT [None]
  - BLOOD BILIRUBIN INCREASED [None]
  - HEPATIC FUNCTION ABNORMAL [None]
